FAERS Safety Report 8157770-9 (Version None)
Quarter: 2012Q1

REPORT INFORMATION
  Report Type: 
  Country: None (occurrence: None)
  Receive Date: 20120222
  Receipt Date: 20120214
  Transmission Date: 20120608
  Serious: Yes (Hospitalization, Other)
  Sender: FDA-Public Use
  Company Number: AT-BAXTER-2012BH002143

PATIENT
  Age: 83 Year
  Sex: Female
  Weight: 65 kg

DRUGS (3)
  1. TISSEEL VH [Suspect]
     Indication: VASCULAR PSEUDOANEURYSM
     Route: 061
     Dates: start: 20120120, end: 20120120
  2. NOVOTHYRAL [Concomitant]
     Indication: PRODUCT USED FOR UNKNOWN INDICATION
     Route: 048
  3. PLAVIX [Concomitant]
     Indication: STENT PLACEMENT
     Route: 048

REACTIONS (3)
  - DRUG INEFFECTIVE FOR UNAPPROVED INDICATION [None]
  - ARTERIAL THROMBOSIS [None]
  - THROMBOSIS [None]
